FAERS Safety Report 13659505 (Version 1)
Quarter: 2017Q2

REPORT INFORMATION
  Report Type: Spontaneous
  Country: CN (occurrence: CN)
  Receive Date: 20170616
  Receipt Date: 20170616
  Transmission Date: 20170830
  Serious: Yes (Hospitalization)
  Sender: FDA-Public Use
  Company Number: CN-GLAXOSMITHKLINE-CN2017GSK088988

PATIENT
  Age: 79 Year
  Sex: Female

DRUGS (5)
  1. LAMICTAL [Suspect]
     Active Substance: LAMOTRIGINE
     Indication: PARTIAL SEIZURES
     Dosage: 50 MG, BID
  2. OXCARBAZEPINE. [Concomitant]
     Active Substance: OXCARBAZEPINE
     Indication: MUSCLE TWITCHING
     Dosage: 150 MG, BID
  3. LAMICTAL [Suspect]
     Active Substance: LAMOTRIGINE
     Dosage: 75 MG, BID
     Dates: start: 20131015
  4. OXCARBAZEPINE. [Concomitant]
     Active Substance: OXCARBAZEPINE
     Indication: PARTIAL SEIZURES
     Dosage: 450 MG, BID
     Route: 048
  5. LAMICTAL [Suspect]
     Active Substance: LAMOTRIGINE
     Indication: MUSCLE TWITCHING
     Dosage: 25 MG, 1D
     Route: 048
     Dates: start: 20130909

REACTIONS (12)
  - Psychiatric symptom [Recovered/Resolved]
  - Hallucination [Unknown]
  - Mental disorder [Recovered/Resolved]
  - Disorganised speech [Unknown]
  - Memory impairment [Unknown]
  - Amnesia [Unknown]
  - Vomiting [Unknown]
  - Pruritus generalised [Unknown]
  - Headache [Unknown]
  - Rash generalised [Recovered/Resolved]
  - Delusion [Unknown]
  - Dizziness [Unknown]

NARRATIVE: CASE EVENT DATE: 20131020
